FAERS Safety Report 9729081 (Version 1)
Quarter: 2013Q4

REPORT INFORMATION
  Report Type: Spontaneous
  Country: US (occurrence: US)
  Receive Date: 20131204
  Receipt Date: 20131204
  Transmission Date: 20140711
  Serious: Yes (Other)
  Sender: FDA-Public Use
  Company Number: PHHY2013US137109

PATIENT
  Age: 40 Year
  Sex: Female

DRUGS (2)
  1. GABAPENTIN [Suspect]
     Indication: PAIN
  2. TRAZODONE [Suspect]
     Dosage: 50 MG, DAILY

REACTIONS (3)
  - Drug-induced liver injury [Unknown]
  - Chronic hepatitis [Unknown]
  - Jaundice [Recovered/Resolved]
